FAERS Safety Report 23605982 (Version 1)
Quarter: 2024Q1

REPORT INFORMATION
  Report Type: Spontaneous
  Country: DE (occurrence: DE)
  Receive Date: 20240307
  Receipt Date: 20240307
  Transmission Date: 20240410
  Serious: Yes (Other)
  Sender: FDA-Public Use
  Company Number: DE-EMA-DD-20240130-7482709-055516

PATIENT
  Age: 81 Year
  Sex: Male
  Weight: 85 kg

DRUGS (9)
  1. FOLIC ACID [Suspect]
     Active Substance: FOLIC ACID
     Indication: Osteoarthritis
     Route: 065
  2. DIMETHYL SULFONE [Interacting]
     Active Substance: DIMETHYL SULFONE
     Indication: Osteoarthritis
     Route: 065
  3. URIDINE [Interacting]
     Active Substance: URIDINE
     Indication: Osteoarthritis
     Route: 065
  4. CHOLECALCIFEROL [Interacting]
     Active Substance: CHOLECALCIFEROL
     Indication: Osteoarthritis
     Route: 065
  5. TAURINE [Interacting]
     Active Substance: TAURINE
     Indication: Osteoarthritis
     Route: 065
  6. THIOCTIC ACID [Interacting]
     Active Substance: THIOCTIC ACID
     Indication: Osteoarthritis
     Route: 065
  7. UBIDECARENONE [Interacting]
     Active Substance: UBIDECARENONE
     Indication: Osteoarthritis
     Route: 065
  8. RELUGOLIX [Interacting]
     Active Substance: RELUGOLIX
     Indication: Prostate cancer
     Dosage: 120 MILLIGRAM, QD
     Route: 065
     Dates: start: 20230401
  9. CALCIUM [Interacting]
     Active Substance: CALCIUM
     Indication: Osteoarthritis
     Route: 065

REACTIONS (5)
  - Disease progression [Unknown]
  - Polyneuropathy [Unknown]
  - Osteoarthritis [Unknown]
  - Prostatic specific antigen increased [Unknown]
  - Drug interaction [Unknown]
